FAERS Safety Report 8408061-X (Version None)
Quarter: 2012Q2

REPORT INFORMATION
  Report Type: 
  Country: None (occurrence: None)
  Receive Date: 20120604
  Receipt Date: 20120525
  Transmission Date: 20120825
  Serious: Yes (Hospitalization)
  Sender: FDA-Public Use
  Company Number: US-MERCK-1203USA01837

PATIENT
  Age: 53 Year
  Sex: Female
  Weight: 104 kg

DRUGS (2)
  1. FOSAMAX [Suspect]
     Indication: OSTEOPENIA
     Route: 048
     Dates: start: 20030101, end: 20100101
  2. BONIVA [Suspect]
     Route: 065

REACTIONS (20)
  - BRONCHITIS [None]
  - VARICOSE VEIN [None]
  - HYPOVITAMINOSIS [None]
  - DIVERTICULUM [None]
  - HAND FRACTURE [None]
  - DENTAL CARIES [None]
  - DEPRESSION [None]
  - HAEMORRHOIDS [None]
  - FEMUR FRACTURE [None]
  - PAIN [None]
  - OSTEOARTHRITIS [None]
  - POLYP COLORECTAL [None]
  - HAEMATOCHEZIA [None]
  - HYPERTENSION [None]
  - VENOUS INSUFFICIENCY [None]
  - SINUSITIS [None]
  - HYPERCHOLESTEROLAEMIA [None]
  - CONSTIPATION [None]
  - OSTEOPOROSIS [None]
  - ARTHRITIS [None]
